FAERS Safety Report 4433313-8 (Version None)
Quarter: 2004Q3

REPORT INFORMATION
  Report Type: 
  Country: None (occurrence: None)
  Receive Date: 20040824
  Receipt Date: 20040806
  Transmission Date: 20050211
  Serious: Yes (Other)
  Sender: FDA-Public Use
  Company Number: 8644

PATIENT
  Age: 64 Year
  Sex: Female

DRUGS (1)
  1. PACLITAXEL [Suspect]
     Indication: BREAST CANCER
     Dosage: 100 MG/M2 WEEKLY

REACTIONS (8)
  - BREAST CANCER [None]
  - JOINT RANGE OF MOTION DECREASED [None]
  - LOCALISED INFECTION [None]
  - MALIGNANT NEOPLASM PROGRESSION [None]
  - OEDEMA PERIPHERAL [None]
  - SCLERODERMA [None]
  - SKIN FIBROSIS [None]
  - THERAPY NON-RESPONDER [None]
